FAERS Safety Report 23229580 (Version 1)
Quarter: 2023Q4

REPORT INFORMATION
  Report Type: Spontaneous
  Country: GB (occurrence: None)
  Receive Date: 20231127
  Receipt Date: 20231127
  Transmission Date: 20240109
  Serious: Yes (Other)
  Sender: FDA-Public Use
  Company Number: None

PATIENT
  Age: 57 Year
  Sex: Female
  Weight: 73 kg

DRUGS (8)
  1. METHOTREXATE [Suspect]
     Active Substance: METHOTREXATE
     Indication: Ill-defined disorder
     Dates: start: 20231123
  2. METHOTREXATE [Suspect]
     Active Substance: METHOTREXATE
     Indication: Ill-defined disorder
     Dates: start: 20231123
  3. METHOTREXATE [Suspect]
     Active Substance: METHOTREXATE
     Indication: Ill-defined disorder
  4. CHOLECALCIFEROL [Concomitant]
     Active Substance: CHOLECALCIFEROL
     Indication: Ill-defined disorder
     Dosage: TAKE TWO TABLETS DAILY AS DIRECTED BY RHEUMATOL...
     Dates: start: 20230630
  5. FOLIC ACID [Concomitant]
     Active Substance: FOLIC ACID
     Indication: Ill-defined disorder
     Dosage: TAKE ONE WEEKLY
     Dates: start: 20230630
  6. HYDROXYCHLOROQUINE SULFATE [Concomitant]
     Active Substance: HYDROXYCHLOROQUINE SULFATE
     Indication: Ill-defined disorder
     Dosage: TAKE ONE TABLET TWICE DAILY AS DIRECTED BY RHEU...
     Dates: start: 20220809, end: 20231120
  7. LEVOTHYROXINE [Concomitant]
     Active Substance: LEVOTHYROXINE
     Indication: Ill-defined disorder
     Dosage: TAKE ONE DAILY
     Dates: start: 20230630
  8. METHOTREXATE [Concomitant]
     Active Substance: METHOTREXATE
     Indication: Ill-defined disorder
     Dates: start: 20230630, end: 20231120

REACTIONS (2)
  - Pancytopenia [Recovered/Resolved]
  - Toxicity to various agents [Unknown]

NARRATIVE: CASE EVENT DATE: 20231123
